FAERS Safety Report 7077305-1 (Version None)
Quarter: 2010Q4

REPORT INFORMATION
  Report Type: 
  Country: None (occurrence: None)
  Receive Date: 20101029
  Receipt Date: 20101029
  Transmission Date: 20110411
  Serious: No
  Sender: FDA-Public Use
  Company Number: None

PATIENT

DRUGS (3)
  1. XANAX [Suspect]
     Indication: MULTIPLE SCLEROSIS
     Dates: start: 20030412, end: 20101027
  2. XANAX [Suspect]
     Indication: PANIC DISORDER
     Dates: start: 20030412, end: 20101027
  3. ALPRAZOLAM [Suspect]
     Indication: MULTIPLE SCLEROSIS
     Dates: start: 20040926, end: 20101027

REACTIONS (4)
  - DRUG INEFFECTIVE [None]
  - HEADACHE [None]
  - PRODUCT FORMULATION ISSUE [None]
  - PRODUCT SUBSTITUTION ISSUE [None]
